FAERS Safety Report 9100996 (Version 1)
Quarter: 2013Q1

REPORT INFORMATION
  Report Type: Spontaneous
  Country: US (occurrence: US)
  Receive Date: 20130215
  Receipt Date: 20130215
  Transmission Date: 20140127
  Serious: Yes (Other)
  Sender: FDA-Public Use
  Company Number: US-ROXANE LABORATORIES, INC.-2013-RO-00230RO

PATIENT
  Age: 53 Year
  Sex: Male

DRUGS (5)
  1. CYCLOPHOSPHAMIDE TABLETS USP [Suspect]
     Indication: GLOMERULONEPHRITIS
     Dosage: 150 MG
     Route: 048
  2. PREDNISONE [Suspect]
     Indication: GLOMERULONEPHRITIS
     Route: 048
  3. METHYLPREDNISOLONE [Suspect]
     Indication: GLOMERULONEPHRITIS
     Dosage: 500 MG
     Route: 042
  4. CYCLOPHOSPHAMIDE [Suspect]
     Indication: GLOMERULONEPHRITIS
     Route: 042
  5. INTERFERON ALFA-2A [Suspect]
     Indication: GLOMERULONEPHRITIS

REACTIONS (7)
  - Drug hypersensitivity [Recovered/Resolved]
  - Thrombocytopenia [Recovered/Resolved]
  - Haemorrhage [Recovered/Resolved]
  - Pyrexia [None]
  - Hepatic cirrhosis [None]
  - Toxicity to various agents [None]
  - Puncture site haemorrhage [None]
